FAERS Safety Report 25218749 (Version 3)
Quarter: 2025Q2

REPORT INFORMATION
  Report Type: Spontaneous
  Country: US (occurrence: US)
  Receive Date: 20250421
  Receipt Date: 20250422
  Transmission Date: 20250717
  Serious: No
  Sender: SANDOZ
  Company Number: US-SANDOZ-SDZ2025US024647

PATIENT
  Age: 53 Year
  Sex: Female
  Weight: 73.94 kg

DRUGS (1)
  1. ESTRADIOL [Suspect]
     Active Substance: ESTRADIOL
     Indication: Menopause
     Dosage: 0.1 MG, BIW, OTHER, TRANSDERMAL SYSTEM
     Route: 062
     Dates: start: 20250330

REACTIONS (5)
  - Fungal skin infection [Unknown]
  - Rash [Recovering/Resolving]
  - Therapeutic product effect decreased [Unknown]
  - Poor quality product administered [Unknown]
  - Product quality issue [Unknown]

NARRATIVE: CASE EVENT DATE: 20250403
